FAERS Safety Report 8694627 (Version 3)
Quarter: 2012Q4

REPORT INFORMATION
  Report Type: 
  Country: US (occurrence: US)
  Receive Date: 20120731
  Receipt Date: 20121127
  Transmission Date: 20130627
  Serious: Yes (Hospitalization)
  Sender: FDA-Public Use
  Company Number: US-GLAXOSMITHKLINE-A0987576A

PATIENT
  Age: 63 Year
  Sex: Female
  Weight: 56.4 kg

DRUGS (4)
  1. MEPRON [Suspect]
     Indication: PARASITE BLOOD TEST POSITIVE
     Dosage: 1TSP Twice per day
     Route: 048
     Dates: start: 20120502, end: 20120706
  2. AZITHROMYCIN [Suspect]
     Indication: PARASITE BLOOD TEST POSITIVE
     Dosage: 1.25TSP Twice per day
     Route: 048
     Dates: start: 20120502, end: 20120706
  3. ACIDOPHILUS [Suspect]
     Route: 048
     Dates: start: 20120502, end: 20120706
  4. NO CONCURRENT MEDICATION [Concomitant]

REACTIONS (5)
  - Pericardial effusion [Not Recovered/Not Resolved]
  - Chest pain [Unknown]
  - Neck pain [Unknown]
  - Pain in extremity [Unknown]
  - Myalgia [Unknown]
